FAERS Safety Report 8607484-3 (Version None)
Quarter: 2012Q3

REPORT INFORMATION
  Report Type: 
  Country: None (occurrence: None)
  Receive Date: 20120809
  Receipt Date: 20120809
  Transmission Date: 20120928
  Serious: Yes (Hospitalization)
  Sender: FDA-Public Use
  Company Number: None

PATIENT
  Age: 81 Year
  Sex: Male
  Weight: 84.5 kg

DRUGS (2)
  1. SULFAMETHOXAZOLE AND TRIMETHOPRIM [Suspect]
     Dosage: 1 TAB BID PO
     Route: 048
     Dates: start: 20111003, end: 20111007
  2. LISINOPRIL AND HYDROCHLOROTHIAZIDE [Suspect]
     Dosage: 1 TAB PO
     Route: 048
     Dates: start: 20090130, end: 20111007

REACTIONS (1)
  - HYPERKALAEMIA [None]
